FAERS Safety Report 9220472 (Version 1)
Quarter: 2013Q1

REPORT INFORMATION
  Report Type: Spontaneous
  Country: US (occurrence: None)
  Receive Date: 20120827
  Receipt Date: 20120827
  Transmission Date: 20140127
  Serious: No
  Sender: FDA-Public Use
  Company Number: 354541

PATIENT
  Sex: Female

DRUGS (5)
  1. VICTOZA (LIRAGLUTIDE) SOLUTION FOR INJECTION 6MG/ML [Suspect]
     Indication: PRODUCT USED FOR UNKNOWN INDICATION
     Route: 058
  2. NOVOLOG FLEXPEN [Suspect]
     Indication: DIABETES MELLITUS
     Route: 058
  3. LEVEMIR (INSULIN DETEMIR) SOLUTION FOR INJECTION [Concomitant]
  4. METFORMIN (METFORMIN) [Concomitant]
  5. GLIMEPIRIDE (GLIMEPIRIDE) [Concomitant]

REACTIONS (5)
  - Asthenia [None]
  - Depression [None]
  - Weight increased [None]
  - Decreased appetite [None]
  - Dyspepsia [None]
